FAERS Safety Report 5466866-1 (Version None)
Quarter: 2007Q3

REPORT INFORMATION
  Report Type: 
  Country: None (occurrence: None)
  Receive Date: 20070925
  Receipt Date: 20070914
  Transmission Date: 20080115
  Serious: Yes (Death, Hospitalization)
  Sender: FDA-Public Use
  Company Number: JP-JNJFOC-20070801242

PATIENT
  Sex: Male

DRUGS (12)
  1. DUROTEP [Suspect]
     Route: 062
  2. DUROTEP [Suspect]
     Indication: CANCER PAIN
     Route: 062
  3. RISPERDAL [Suspect]
     Route: 048
  4. RISPERDAL [Suspect]
     Indication: DELIRIUM
     Route: 048
  5. PRANLUKAST HYDRATE [Concomitant]
     Indication: ASTHMA
     Route: 048
  6. MEILAX [Concomitant]
     Indication: INSOMNIA
     Route: 048
  7. AMOBAN [Concomitant]
     Indication: INSOMNIA
     Route: 048
  8. MEDROL [Concomitant]
     Indication: ASTHMA
     Route: 048
  9. MOBIC [Concomitant]
     Indication: PAIN
     Route: 048
  10. RHYTHMY [Concomitant]
     Indication: INSOMNIA
     Route: 048
  11. RESLIN [Concomitant]
     Indication: INSOMNIA
     Route: 048
  12. HOKUNALIN [Concomitant]
     Indication: ASTHMA
     Route: 062

REACTIONS (8)
  - ABDOMINAL PAIN UPPER [None]
  - ALTERED STATE OF CONSCIOUSNESS [None]
  - DYSPNOEA [None]
  - MUSCLE RIGIDITY [None]
  - NEUROLEPTIC MALIGNANT SYNDROME [None]
  - PNEUMONIA ASPIRATION [None]
  - RESPIRATORY DEPRESSION [None]
  - THERAPY REGIMEN CHANGED [None]
